FAERS Safety Report 16584002 (Version 2)
Quarter: 2020Q3

REPORT INFORMATION
  Report Type: Report from Study
  Country: ES (occurrence: ES)
  Receive Date: 20190717
  Receipt Date: 20200506
  Transmission Date: 20201104
  Serious: Yes (Hospitalization)
  Sender: FDA-Public Use
  Company Number: ES-ROCHE-2350196

PATIENT
  Age: 82 Year
  Sex: Female
  Weight: 47 kg

DRUGS (3)
  1. POLATUZUMAB VEDOTIN. [Suspect]
     Active Substance: POLATUZUMAB VEDOTIN
     Indication: DIFFUSE LARGE B-CELL LYMPHOMA
     Dosage: THE PHYSICIAN CONFIRMED THAT THE PATIENT RECEIVED 5TH CYCLE OF POLATUZUMAB VEDOTIN ON 17/JUN/2019
     Route: 042
     Dates: start: 20190320, end: 20190618
  2. RITUXIMAB. [Suspect]
     Active Substance: RITUXIMAB
     Indication: DIFFUSE LARGE B-CELL LYMPHOMA
     Dosage: THE PHYSICIAN CONFIRMED THAT THE PATIENT RECEIVED 5TH CYCLE OF RITUXIMAB ON 17/JUN/2019
     Route: 041
     Dates: start: 20190320, end: 20190618
  3. BENDAMUSTINE [Suspect]
     Active Substance: BENDAMUSTINE
     Indication: DIFFUSE LARGE B-CELL LYMPHOMA
     Dosage: THE PHYSICIAN CONFIRMED THAT THE PATIENT RECEIVED 5TH CYCLE OF BENDAMUSTINE ON 17/JUN/2019
     Route: 042
     Dates: start: 20190320, end: 20190618

REACTIONS (3)
  - Pyrexia [Recovering/Resolving]
  - Hepatotoxicity [Recovering/Resolving]
  - Neutropenia [Recovered/Resolved with Sequelae]

NARRATIVE: CASE EVENT DATE: 20190513
